FAERS Safety Report 15023421 (Version 1)
Quarter: 2018Q2

REPORT INFORMATION
  Report Type: Spontaneous
  Country: US (occurrence: US)
  Receive Date: 20180524
  Receipt Date: 20180524
  Transmission Date: 20180711
  Serious: Yes (Other)
  Sender: FDA-Public Use
  Company Number: None

PATIENT
  Age: 64 Year
  Sex: Female
  Weight: 88 kg

DRUGS (2)
  1. ESTRADIOL TRANSDERMAL SYSTEM [Suspect]
     Active Substance: ESTRADIOL
     Indication: MENOPAUSAL SYMPTOMS
     Dates: start: 2017
  2. ESTRADIOL TRANSDERMAL SYSTEM [Suspect]
     Active Substance: ESTRADIOL
     Indication: MENOPAUSAL SYMPTOMS
     Dates: start: 2017

REACTIONS (7)
  - Drug ineffective [None]
  - Urticaria [None]
  - Product physical issue [None]
  - Menstruation irregular [None]
  - Pruritus [None]
  - Muscle spasms [None]
  - Application site rash [None]

NARRATIVE: CASE EVENT DATE: 2017
